FAERS Safety Report 6031137-1 (Version None)
Quarter: 2008Q4

REPORT INFORMATION
  Report Type: 
  Country: None (occurrence: None)
  Receive Date: 20081222
  Receipt Date: 20081015
  Transmission Date: 20090506
  Serious: No
  Sender: FDA-Public Use
  Company Number: US-WYE-H06406608

PATIENT
  Age: 83 Year
  Sex: Female
  Weight: 61.29 kg

DRUGS (6)
  1. PRISTIQ [Suspect]
     Indication: DEPRESSION
     Dosage: 50 MG 1X PER 1 DAY, ORAL
     Route: 048
     Dates: start: 20081009, end: 20081015
  2. EFFEXOR XR [Suspect]
     Dosage: 300 MG 1X PER 1 DAY
  3. AMLODIPINE [Concomitant]
  4. HYDROCHLOROTHIAZIDE [Concomitant]
  5. LITHIUM CARBONATE [Concomitant]
  6. MIRTAZAPINE [Concomitant]

REACTIONS (3)
  - ASTHENIA [None]
  - DIARRHOEA [None]
  - DIZZINESS [None]
